FAERS Safety Report 14121018 (Version 1)
Quarter: 2017Q4

REPORT INFORMATION
  Report Type: Spontaneous
  Country: US (occurrence: US)
  Receive Date: 20171024
  Receipt Date: 20171024
  Transmission Date: 20180321
  Serious: No
  Sender: FDA-Public Use
  Company Number: US-SA-2017SA179194

PATIENT
  Age: 68 Year
  Sex: Male

DRUGS (1)
  1. LUMIZYME [Suspect]
     Active Substance: ALGLUCOSIDASE ALFA
     Route: 041

REACTIONS (3)
  - Muscle tightness [Unknown]
  - Yawning [Unknown]
  - Somnolence [Unknown]

NARRATIVE: CASE EVENT DATE: 20170919
